FAERS Safety Report 16141226 (Version 1)
Quarter: 2019Q2

REPORT INFORMATION
  Report Type: Spontaneous
  Country: DE (occurrence: DE)
  Receive Date: 20190401
  Receipt Date: 20190401
  Transmission Date: 20190711
  Serious: Yes (Other)
  Sender: FDA-Public Use
  Company Number: PHHY2019DE072031

PATIENT
  Age: 51 Year
  Sex: Male

DRUGS (1)
  1. INTERFERON BETA-1B [Suspect]
     Active Substance: INTERFERON BETA-1B
     Indication: MULTIPLE SCLEROSIS
     Dosage: 250 UG, BID
     Route: 058
     Dates: start: 20170621

REACTIONS (1)
  - Status epilepticus [Recovering/Resolving]

NARRATIVE: CASE EVENT DATE: 20190215
